FAERS Safety Report 14948822 (Version 1)
Quarter: 2018Q2

REPORT INFORMATION
  Report Type: Spontaneous
  Country: JP (occurrence: JP)
  Receive Date: 20180529
  Receipt Date: 20180529
  Transmission Date: 20180711
  Serious: Yes (Hospitalization, Other)
  Sender: FDA-Public Use
  Company Number: JP-SHIRE-JP201815875

PATIENT

DRUGS (2)
  1. 433 (CARBAMAZEPINE) [Suspect]
     Active Substance: CARBAMAZEPINE
     Indication: BLEPHAROSPASM
     Route: 065
  2. PREDNISOLONE. [Concomitant]
     Active Substance: PREDNISOLONE
     Indication: BLEPHAROSPASM

REACTIONS (3)
  - Diabetic ketoacidosis [Unknown]
  - Drug reaction with eosinophilia and systemic symptoms [Unknown]
  - Fulminant type 1 diabetes mellitus [Unknown]
